FAERS Safety Report 8957040 (Version 1)
Quarter: 2012Q4

REPORT INFORMATION
  Report Type: 
  Country: US (occurrence: US)
  Receive Date: 20121210
  Receipt Date: 20121210
  Transmission Date: 20130627
  Serious: Yes (Hospitalization, Disabling, Other)
  Sender: FDA-Public Use
  Company Number: US-009507513-2011SP014788

PATIENT

DRUGS (3)
  1. NUVARING [Suspect]
     Indication: CONTRACEPTION
     Dosage: UNK UNK, QM
     Dates: start: 2006
  2. NUVARING [Suspect]
     Indication: ANTIDEPRESSANT THERAPY
     Dates: start: 2008, end: 200904
  3. PHENELZINE SULFATE [Suspect]
     Indication: DEPRESSION

REACTIONS (18)
  - Amnesia [Unknown]
  - Aphasia [Unknown]
  - Meningitis viral [Unknown]
  - Cerebral thrombosis [Unknown]
  - Headache [Not Recovered/Not Resolved]
  - Transverse sinus thrombosis [Recovering/Resolving]
  - Intracranial venous sinus thrombosis [Recovering/Resolving]
  - Tremor [Not Recovered/Not Resolved]
  - Mastoiditis [Recovered/Resolved]
  - Pleocytosis [Unknown]
  - Blood pressure decreased [Unknown]
  - Road traffic accident [Unknown]
  - Overdose [Unknown]
  - Urinary tract infection [Unknown]
  - Off label use [Unknown]
  - Abdominal pain upper [Unknown]
  - Anxiety [Unknown]
  - Depression [Unknown]
